FAERS Safety Report 4817247-2 (Version None)
Quarter: 2005Q4

REPORT INFORMATION
  Report Type: 
  Country: None (occurrence: None)
  Receive Date: 20051018
  Receipt Date: 20050201
  Transmission Date: 20060501
  Serious: Yes (Other)
  Sender: FDA-Public Use
  Company Number: PHEH2005US01573

PATIENT
  Age: 55 Year
  Sex: Female

DRUGS (18)
  1. ZOLEDRONATE (ZOLEDRONATE) SOLUTION FOR INJECTION [Suspect]
     Dates: start: 20011130, end: 20040406
  2. ZOLEDRONIC ACID (ZOLEDRONATE) UNKNOWN [Suspect]
     Indication: HYPERCALCAEMIA OF MALIGNANCY
     Dates: start: 20010302, end: 20011102
  3. MULTIVIT (VITAMINS NOS) [Concomitant]
  4. VITAMIN C (ASCORBIC ACID) [Concomitant]
  5. AREDIA [Suspect]
     Indication: HYPERCALCAEMIA OF MALIGNANCY
     Dates: start: 20010302, end: 20011102
  6. CALCIUM (CALCIUM) [Concomitant]
  7. ULTRAM [Concomitant]
  8. SUDAFED 12 HOUR [Concomitant]
  9. WARFARIN SODIUM [Concomitant]
  10. COENZYME Q10 [Concomitant]
  11. CELEXA [Concomitant]
  12. FLAXSEED OIL (LINUM USITATISSIUMUM SEED OIL) [Concomitant]
  13. VITA-E (TOCOPHEROL) [Concomitant]
  14. MILK THISTLE [Concomitant]
  15. VIOXX [Concomitant]
  16. DONYQUAI [Concomitant]
  17. METHOTREXATE [Concomitant]
  18. XANAX [Concomitant]

REACTIONS (3)
  - ORAL SURGERY [None]
  - OSTEONECROSIS [None]
  - TOOTH DISORDER [None]
